FAERS Safety Report 5566265-8 (Version None)
Quarter: 2007Q4

REPORT INFORMATION
  Report Type: 
  Country: None (occurrence: None)
  Receive Date: 20071219
  Receipt Date: 20071212
  Transmission Date: 20080405
  Serious: Yes (Other)
  Sender: FDA-Public Use
  Company Number: GR-BRISTOL-MYERS SQUIBB COMPANY-14018261

PATIENT
  Age: 32 Year
  Sex: Male

DRUGS (3)
  1. EFAVIRENZ [Suspect]
     Indication: HIV INFECTION
     Route: 048
     Dates: start: 20030301, end: 20070901
  2. DIDANOSINE [Suspect]
  3. TENOFOVIR DISOPROXIL FUMARATE [Concomitant]

REACTIONS (1)
  - NERVOUS SYSTEM DISORDER [None]
